FAERS Safety Report 15416425 (Version 1)
Quarter: 2018Q3

REPORT INFORMATION
  Report Type: Spontaneous
  Country: DE (occurrence: DE)
  Receive Date: 20180924
  Receipt Date: 20180924
  Transmission Date: 20181010
  Serious: Yes (Other)
  Sender: FDA-Public Use
  Company Number: PHHY2018DE103275

PATIENT
  Sex: Male

DRUGS (2)
  1. METOPROLOLSUCCINAAT RETARD [Suspect]
     Active Substance: METOPROLOL SUCCINATE
     Indication: PRODUCT USED FOR UNKNOWN INDICATION
     Dosage: 95 MG, UNK
     Route: 065
  2. METOPROLOLSUCCINAAT RETARD [Suspect]
     Active Substance: METOPROLOL SUCCINATE
     Dosage: 95 MG, UNK
     Route: 065

REACTIONS (1)
  - Arrhythmia [Recovered/Resolved]
